FAERS Safety Report 20130171 (Version 1)
Quarter: 2021Q4

REPORT INFORMATION
  Report Type: Spontaneous
  Country: ES (occurrence: ES)
  Receive Date: 20211130
  Receipt Date: 20211130
  Transmission Date: 20220303
  Serious: Yes (Other)
  Sender: FDA-Public Use
  Company Number: ES-UCBSA-2021045816

PATIENT
  Age: 28 Year
  Sex: Female

DRUGS (3)
  1. LEVETIRACETAM [Suspect]
     Active Substance: LEVETIRACETAM
     Indication: Generalised tonic-clonic seizure
     Dosage: 500 MILLIGRAM
  2. MIDAZOLAM [Suspect]
     Active Substance: MIDAZOLAM
     Indication: Generalised tonic-clonic seizure
     Dosage: 2 MILLIGRAM
  3. DIAZEPAM [Suspect]
     Active Substance: DIAZEPAM
     Indication: Generalised tonic-clonic seizure
     Dosage: 5 MILLIGRAM

REACTIONS (1)
  - Multiple-drug resistance [Unknown]
